FAERS Safety Report 4516426-1 (Version None)
Quarter: 2004Q4

REPORT INFORMATION
  Report Type: 
  Country: None (occurrence: None)
  Receive Date: 20041202
  Receipt Date: 20040528
  Transmission Date: 20050328
  Serious: Yes (Other)
  Sender: FDA-Public Use
  Company Number: US-GLAXOSMITHKLINE-A0512625A

PATIENT
  Age: 39 Year
  Sex: Female
  Weight: 120 kg

DRUGS (1)
  1. AUGMENTIN '125' [Suspect]
     Indication: SINUSITIS
     Dosage: 2000MG TWICE PER DAY
     Route: 048

REACTIONS (7)
  - ABDOMINAL PAIN [None]
  - ABNORMAL FAECES [None]
  - COLITIS [None]
  - CONSTIPATION [None]
  - DIARRHOEA [None]
  - HEPATIC ENZYME INCREASED [None]
  - RECTAL HAEMORRHAGE [None]
